FAERS Safety Report 4300293-5 (Version None)
Quarter: 2004Q1

REPORT INFORMATION
  Report Type: 
  Country: None (occurrence: None)
  Receive Date: 20040218
  Receipt Date: 20040202
  Transmission Date: 20041129
  Serious: Yes (Hospitalization, Other)
  Sender: FDA-Public Use
  Company Number: USA040258281

PATIENT
  Sex: Female

DRUGS (3)
  1. FORTEO [Suspect]
     Dates: start: 20031027, end: 20031108
  2. MIACALCIN [Concomitant]
  3. ACTONEL [Concomitant]

REACTIONS (5)
  - FALL [None]
  - PAIN [None]
  - PELVIC FRACTURE [None]
  - SPINAL COMPRESSION FRACTURE [None]
  - SYNCOPE [None]
